FAERS Safety Report 5975508-8 (Version None)
Quarter: 2008Q4

REPORT INFORMATION
  Report Type: 
  Country: None (occurrence: None)
  Receive Date: 20081202
  Receipt Date: 20081010
  Transmission Date: 20090506
  Serious: No
  Sender: FDA-Public Use
  Company Number: US-BAYER-200825090NA

PATIENT
  Age: 75 Year

DRUGS (6)
  1. MAGNEVIST [Suspect]
     Indication: NUCLEAR MAGNETIC RESONANCE IMAGING ABDOMINAL
     Dosage: TOTAL DAILY DOSE: 20 ML  UNIT DOSE: 20 ML
     Route: 042
     Dates: start: 20080519, end: 20080519
  2. INSULIN [Concomitant]
     Dates: start: 20080519
  3. ASPIRIN [Concomitant]
     Route: 065
  4. ATENOLOL [Concomitant]
     Route: 065
  5. PROTONIX [Concomitant]
     Route: 065
  6. LISTRIN [Concomitant]

REACTIONS (1)
  - URTICARIA [None]
